FAERS Safety Report 11683111 (Version 4)
Quarter: 2016Q1

REPORT INFORMATION
  Report Type: Spontaneous
  Country: US (occurrence: US)
  Receive Date: 20151029
  Receipt Date: 20160113
  Transmission Date: 20160525
  Serious: Yes (Hospitalization)
  Sender: FDA-Public Use
  Company Number: PHEH2015US021641

PATIENT
  Age: 79 Year
  Sex: Male

DRUGS (1)
  1. VOTRIENT [Suspect]
     Active Substance: PAZOPANIB HYDROCHLORIDE
     Indication: RENAL CANCER
     Dosage: 4 DF, QD
     Route: 048
     Dates: start: 201509

REACTIONS (8)
  - Diarrhoea [Not Recovered/Not Resolved]
  - Rash [Unknown]
  - Anal inflammation [Unknown]
  - Stomatitis [Unknown]
  - Mucosal inflammation [Unknown]
  - Chills [Unknown]
  - Nasopharyngitis [Unknown]
  - Pancreatic disorder [Unknown]

NARRATIVE: CASE EVENT DATE: 20151022
